FAERS Safety Report 8196074-5 (Version None)
Quarter: 2012Q1

REPORT INFORMATION
  Report Type: 
  Country: None (occurrence: None)
  Receive Date: 20120309
  Receipt Date: 20120301
  Transmission Date: 20120608
  Serious: No
  Sender: FDA-Public Use
  Company Number: US-BIOGENIDEC-2012BI003833

PATIENT
  Age: 68 Year
  Sex: Female

DRUGS (4)
  1. AMITRIPTYLINE HCL [Concomitant]
  2. ZANAFLEX [Concomitant]
  3. AVONEX [Suspect]
     Indication: MULTIPLE SCLEROSIS
     Route: 030
     Dates: start: 20020823, end: 20030101
  4. AVONEX [Suspect]
     Route: 030
     Dates: start: 20030101

REACTIONS (13)
  - DEHYDRATION [None]
  - CYSTITIS [None]
  - HUMAN EHRLICHIOSIS [None]
  - HEPATIC ENZYME INCREASED [None]
  - ABDOMINAL DISCOMFORT [None]
  - WHITE BLOOD CELL COUNT DECREASED [None]
  - PLATELET COUNT DECREASED [None]
  - PYREXIA [None]
  - VOMITING [None]
  - APHAGIA [None]
  - WEIGHT DECREASED [None]
  - NASOPHARYNGITIS [None]
  - GAIT DISTURBANCE [None]
